FAERS Safety Report 4527964-X (Version None)
Quarter: 2004Q4

REPORT INFORMATION
  Report Type: 
  Country: None (occurrence: None)
  Receive Date: 20041123
  Receipt Date: 20040413
  Transmission Date: 20050328
  Serious: Yes (Hospitalization)
  Sender: FDA-Public Use
  Company Number: 2003124279

PATIENT
  Sex: Male

DRUGS (1)
  1. LIPITOR [Suspect]
     Indication: ILL-DEFINED DISORDER

REACTIONS (6)
  - BACK PAIN [None]
  - DIFFICULTY IN WALKING [None]
  - MUSCLE INJURY [None]
  - PAIN IN EXTREMITY [None]
  - PNEUMONIA [None]
  - WALKING AID USER [None]
